FAERS Safety Report 10163106 (Version 19)
Quarter: 2016Q3

REPORT INFORMATION
  Report Type: Spontaneous
  Country: US (occurrence: US)
  Receive Date: 20140509
  Receipt Date: 20160831
  Transmission Date: 20161108
  Serious: Yes (Death, Hospitalization, Other)
  Sender: FDA-Public Use
  Company Number: US-GLAXOSMITHKLINE-A1044798A

PATIENT
  Age: 44 Year
  Sex: Female

DRUGS (13)
  1. FLOLAN [Suspect]
     Active Substance: EPOPROSTENOL SODIUM
     Dosage: 53 NG/KG/MIN; CONCENTRATION 45,000 NG/ML; PUMP RATE 85 ML/DAY; VIAL STRENGTH 1.5 MG
     Route: 042
  2. FLOLAN [Suspect]
     Active Substance: EPOPROSTENOL SODIUM
     Dosage: 53 NG/KG/MIN
     Route: 042
  3. FLOLAN [Suspect]
     Active Substance: EPOPROSTENOL SODIUM
     Dosage: 59 NG/KG/MIN CONTINUOUS
     Route: 042
     Dates: start: 20110216
  4. REVATIO [Concomitant]
     Active Substance: SILDENAFIL CITRATE
  5. FLOLAN [Suspect]
     Active Substance: EPOPROSTENOL SODIUM
     Dosage: UNK
     Dates: start: 20080926
  6. FLOLAN [Suspect]
     Active Substance: EPOPROSTENOL SODIUM
     Dosage: UNK
     Dates: start: 20080926
  7. FLOLAN [Suspect]
     Active Substance: EPOPROSTENOL SODIUM
     Dosage: 22 NG/KG/MIN (CONCENTRATION 45,000 NG/ML, PUMP RATE 64 ML/DAY, VIAL STRENGTH 1.5 MG/ML), CO
     Route: 042
  8. FLOLAN [Suspect]
     Active Substance: EPOPROSTENOL SODIUM
     Indication: PULMONARY ARTERIAL HYPERTENSION
  9. WARFARIN [Concomitant]
     Active Substance: WARFARIN
  10. OPSUMIT [Concomitant]
     Active Substance: MACITENTAN
  11. FLOLAN [Suspect]
     Active Substance: EPOPROSTENOL SODIUM
     Indication: PULMONARY ARTERIAL HYPERTENSION
     Dosage: DOSE: 49 NG/KG/MIN CONTINUOUSLYCONCENTRATION: 45,000 NG/MLPUMP RATE: 78 ML/DAYVIAL STRENGTH: 1.[...]
     Route: 042
     Dates: start: 20080926
  12. FLOLAN [Suspect]
     Active Substance: EPOPROSTENOL SODIUM
     Dosage: 55 NG/KG/MIN CONTINUOUS
     Route: 042
  13. FLOLAN [Suspect]
     Active Substance: EPOPROSTENOL SODIUM
     Dosage: 66 NG/KG/MIN, CO
     Route: 042

REACTIONS (13)
  - Condition aggravated [Unknown]
  - Hepatic congestion [Not Recovered/Not Resolved]
  - Abdominal pain [Not Recovered/Not Resolved]
  - Pulmonary arterial hypertension [Unknown]
  - Death [Fatal]
  - Influenza [Unknown]
  - Back pain [Unknown]
  - Pneumonia [Unknown]
  - Pulmonary hypertension [Unknown]
  - Pyrexia [Not Recovered/Not Resolved]
  - Hospitalisation [Not Recovered/Not Resolved]
  - Dyspnoea [Unknown]
  - Liver function test increased [Not Recovered/Not Resolved]

NARRATIVE: CASE EVENT DATE: 2014
